FAERS Safety Report 9230818 (Version 2)
Quarter: 2013Q2

REPORT INFORMATION
  Report Type: Spontaneous
  Country: IT (occurrence: IT)
  Receive Date: 20130415
  Receipt Date: 20130508
  Transmission Date: 20140414
  Serious: Yes (Hospitalization)
  Sender: FDA-Public Use
  Company Number: IT-ROCHE-1212717

PATIENT
  Age: 37 Year
  Sex: Male

DRUGS (3)
  1. VALIUM [Suspect]
     Indication: PRODUCT USED FOR UNKNOWN INDICATION
     Route: 048
     Dates: start: 20130320, end: 20130320
  2. TEGRETOL [Suspect]
     Indication: WITHDRAWAL SYNDROME
     Route: 048
     Dates: start: 20130320, end: 20130320
  3. HALCION [Suspect]
     Indication: WITHDRAWAL SYNDROME
     Route: 048
     Dates: start: 20130320, end: 20130320

REACTIONS (4)
  - Asthenia [Recovered/Resolved]
  - Vomiting [Recovered/Resolved]
  - Dysarthria [Recovered/Resolved]
  - Psychomotor skills impaired [Recovered/Resolved]
